FAERS Safety Report 9455683 (Version 1)
Quarter: 2013Q3

REPORT INFORMATION
  Report Type: Spontaneous
  Country: JP (occurrence: JP)
  Receive Date: 20130813
  Receipt Date: 20130813
  Transmission Date: 20140515
  Serious: Yes (Other)
  Sender: FDA-Public Use
  Company Number: JP-PFIZER INC-2013229160

PATIENT
  Sex: Male

DRUGS (2)
  1. VIAGRA [Suspect]
     Dosage: 50 MG, 1X/DAY
     Route: 048
  2. MENESIT [Concomitant]
     Dosage: UNK
     Route: 048

REACTIONS (2)
  - Parkinsonian crisis [Unknown]
  - Drug ineffective [Unknown]
